FAERS Safety Report 15632743 (Version 1)
Quarter: 2018Q4

REPORT INFORMATION
  Report Type: Spontaneous
  Country: GB (occurrence: GB)
  Receive Date: 20181119
  Receipt Date: 20181119
  Transmission Date: 20190205
  Serious: Yes (Other)
  Sender: FDA-Public Use
  Company Number: GB-PFIZER INC-2018467281

PATIENT
  Age: 69 Year
  Sex: Male
  Weight: 100 kg

DRUGS (18)
  1. ISPAGHULA EXTRACT\PSYLLIUM [Concomitant]
     Active Substance: HERBALS\PLANTAGO OVATA SEED\PLANTAGO SEED
     Dosage: ONE OR TWO DAILY
     Dates: start: 20170323
  2. ALENDRONIC ACID [Concomitant]
     Active Substance: ALENDRONIC ACID
     Dosage: 1 DF, WEEKLY
     Dates: start: 20170301
  3. FENBID [Concomitant]
     Active Substance: IBUPROFEN
     Dosage: 3 DF, 1X/DAY (APPLY)
     Dates: start: 20180920, end: 20181018
  4. CANDESARTAN. [Concomitant]
     Active Substance: CANDESARTAN
     Dosage: 1 DF, 1X/DAY
     Dates: start: 20150320
  5. DOXAZOSIN MESILATE [Suspect]
     Active Substance: DOXAZOSIN MESYLATE
     Indication: ESSENTIAL HYPERTENSION
     Dosage: 1 MG, 1X/DAY (IN MORNING)
     Dates: start: 20180412, end: 2018
  6. FLUTICASONE FUROATE [Concomitant]
     Active Substance: FLUTICASONE FUROATE
     Dosage: 1 DF, 1X/DAY
     Dates: start: 20181004
  7. BUMETANIDE. [Concomitant]
     Active Substance: BUMETANIDE
     Dosage: 1 MG, 1X/DAY (IN THE MORNING)
     Dates: start: 20150721
  8. LAXIDO [Concomitant]
     Active Substance: POLYETHYLENE GLYCOL 3350\POTASSIUM CHLORIDE\SODIUM BICARBONATE\SODIUM CHLORIDE
     Dosage: TAKE ONE SACHET, ONCE OR TWICE A DAY
     Dates: start: 20180717
  9. LANSOPRAZOLE. [Concomitant]
     Active Substance: LANSOPRAZOLE
     Dosage: 1 DF, 1X/DAY (IN THE MORNING 30 MINUTES BEFORE FOOD)
     Dates: start: 20171023
  10. MOMETASONE [Concomitant]
     Active Substance: MOMETASONE
     Dosage: 2 DF, 1X/DAY (SPRAYS EACH NOSTRIL)
     Route: 045
     Dates: start: 20121213, end: 20181004
  11. COLECALCIFEROL [Concomitant]
     Active Substance: CHOLECALCIFEROL
     Dosage: DEFICIENCY IN ADULTS WEEKLY REGIME
     Dates: start: 20181010
  12. DOUBLEBASE [Concomitant]
     Active Substance: ISOPROPYL MYRISTATE\PARAFFIN
     Dosage: APPLY LIBERALLY AND FREQUENTLY TO ALL AFFECTED
     Dates: start: 20150107
  13. SODIUM CROMOGLICATE [Concomitant]
     Active Substance: CROMOLYN SODIUM
     Dosage: 4 GTT, 1X/DAY
     Dates: start: 20171128
  14. PARACETAMOL [Concomitant]
     Active Substance: ACETAMINOPHEN
     Dosage: 8 DF, DAILY
     Dates: start: 20121102, end: 20180725
  15. BISOPROLOL [Concomitant]
     Active Substance: BISOPROLOL
     Dosage: 1 DF, 1X/DAY
     Dates: start: 20180124
  16. ATORVASTATIN [Concomitant]
     Active Substance: ATORVASTATIN
     Dosage: 1 DF, 1X/DAY
     Dates: start: 20140507
  17. DOXAZOSIN MESILATE [Suspect]
     Active Substance: DOXAZOSIN MESYLATE
     Dosage: 1 DF, 1X/DAY (IN THE MORNING)
     Dates: start: 20180518, end: 20181023
  18. COCODAMOL [Concomitant]
     Active Substance: ACETAMINOPHEN\CODEINE PHOSPHATE
     Dosage: UNK, 4X/DAY (1-2 FOUR TIMES A DAY)
     Dates: start: 20180717, end: 20180920

REACTIONS (3)
  - Back pain [Recovered/Resolved]
  - Headache [Unknown]
  - Tinnitus [Unknown]

NARRATIVE: CASE EVENT DATE: 20180412
